FAERS Safety Report 10159380 (Version 1)
Quarter: 2014Q2

REPORT INFORMATION
  Report Type: Spontaneous
  Country: US (occurrence: US)
  Receive Date: 20140508
  Receipt Date: 20140508
  Transmission Date: 20141212
  Serious: No
  Sender: FDA-Public Use
  Company Number: US-JNJFOC-20140408788

PATIENT
  Age: 33 Year
  Sex: Female

DRUGS (1)
  1. INVEGA [Suspect]
     Indication: SCHIZOAFFECTIVE DISORDER
     Route: 048
     Dates: start: 20140109

REACTIONS (2)
  - Blood prolactin increased [Not Recovered/Not Resolved]
  - Amenorrhoea [Not Recovered/Not Resolved]
